FAERS Safety Report 16966136 (Version 1)
Quarter: 2019Q4

REPORT INFORMATION
  Report Type: Spontaneous
  Country: US (occurrence: US)
  Receive Date: 20191028
  Receipt Date: 20191028
  Transmission Date: 20200122
  Serious: No
  Sender: FDA-Public Use
  Company Number: US-KYOWAKIRIN-2019BKK016615

PATIENT

DRUGS (4)
  1. CALCITRIOL. [Suspect]
     Active Substance: CALCITRIOL
     Indication: BLOOD PARATHYROID HORMONE INCREASED
     Dosage: 0.5 MCG, DAILY
     Route: 065
     Dates: start: 201910, end: 201910
  2. CRYSVITA [Suspect]
     Active Substance: BUROSUMAB-TWZA
     Indication: HEREDITARY HYPOPHOSPHATAEMIC RICKETS
     Dosage: 60 MG, MONTHLY
     Route: 065
     Dates: start: 20180701
  3. ZEMPLAR [Suspect]
     Active Substance: PARICALCITOL
     Indication: PRODUCT USED FOR UNKNOWN INDICATION
     Dosage: 2 MCG, PER DAY
     Route: 065
     Dates: start: 201910
  4. ZEMPLAR [Suspect]
     Active Substance: PARICALCITOL
     Dosage: 1 MCG, DAILY
     Dates: start: 201910

REACTIONS (1)
  - Contraindicated product administered [Unknown]

NARRATIVE: CASE EVENT DATE: 201910
